FAERS Safety Report 6342772-5 (Version None)
Quarter: 2009Q3

REPORT INFORMATION
  Report Type: 
  Country: None (occurrence: None)
  Receive Date: 20090908
  Receipt Date: 20090810
  Transmission Date: 20100115
  Serious: No
  Sender: FDA-Public Use
  Company Number: US-JNJFOC-20090803237

PATIENT
  Age: 66 Year
  Sex: Female

DRUGS (2)
  1. INVEGA [Suspect]
     Indication: MAJOR DEPRESSION
     Route: 048
  2. PROZAC [Concomitant]
     Indication: DRUG USE FOR UNKNOWN INDICATION

REACTIONS (1)
  - HYPERTENSION [None]
